FAERS Safety Report 19593363 (Version 1)
Quarter: 2021Q3

REPORT INFORMATION
  Report Type: Spontaneous
  Country: US (occurrence: US)
  Receive Date: 20210721
  Receipt Date: 20210721
  Transmission Date: 20211014
  Serious: No
  Sender: FDA-Public Use
  Company Number: None

PATIENT
  Age: 49 Year
  Sex: Female

DRUGS (10)
  1. AZITHROMYCIN ANHYDROUS. [Concomitant]
     Active Substance: AZITHROMYCIN ANHYDROUS
  2. TOPIRAMATE. [Concomitant]
     Active Substance: TOPIRAMATE
  3. ATORVASTATIN [Concomitant]
     Active Substance: ATORVASTATIN
  4. CYCLOBENZAPR [Concomitant]
     Active Substance: CYCLOBENZAPRINE
  5. SERTRALINE [Concomitant]
     Active Substance: SERTRALINE HYDROCHLORIDE
  6. BROM/PSE/DM [Concomitant]
  7. CLONAZEPAM. [Concomitant]
     Active Substance: CLONAZEPAM
  8. ELIQUIS [Concomitant]
     Active Substance: APIXABAN
  9. PREDNISONE. [Concomitant]
     Active Substance: PREDNISONE
  10. BENLYSTA [Suspect]
     Active Substance: BELIMUMAB
     Indication: SYSTEMIC LUPUS ERYTHEMATOSUS
     Dosage: ?          OTHER FREQUENCY:Q7D ;?
     Route: 058
     Dates: start: 20180214

REACTIONS (4)
  - Musculoskeletal disorder [None]
  - Systemic lupus erythematosus [None]
  - Body temperature abnormal [None]
  - Pain [None]

NARRATIVE: CASE EVENT DATE: 20210720
